FAERS Safety Report 8833210 (Version 1)
Quarter: 2012Q4

REPORT INFORMATION
  Report Type: 
  Country: GB (occurrence: GB)
  Receive Date: 20121010
  Receipt Date: 20121010
  Transmission Date: 20130627
  Serious: Yes (Other)
  Sender: FDA-Public Use
  Company Number: GB-UCBSA-068284

PATIENT
  Age: 5 Year
  Sex: Male
  Weight: 16 kg

DRUGS (1)
  1. EQUASYM XL [Suspect]
     Indication: ATTENTION DEFICIT/HYPERACTIVITY DISORDER
     Dosage: DOSE:10 MG
     Route: 048
     Dates: start: 20120908, end: 20120910

REACTIONS (4)
  - Logorrhoea [Recovered/Resolved]
  - Tremor [Unknown]
  - Dystonia [Recovered/Resolved]
  - Dyskinesia [Unknown]
